FAERS Safety Report 21283192 (Version 4)
Quarter: 2022Q4

REPORT INFORMATION
  Report Type: Spontaneous
  Country: IN (occurrence: IN)
  Receive Date: 20220901
  Receipt Date: 20221006
  Transmission Date: 20230113
  Serious: Yes (Other)
  Sender: FDA-Public Use
  Company Number: IN-PFIZER INC-PV202200047317

PATIENT
  Age: 75 Year
  Sex: Female
  Weight: 57 kg

DRUGS (2)
  1. PALBOCICLIB [Suspect]
     Active Substance: PALBOCICLIB
     Dosage: 125 MG, 1X/DAY
     Route: 048
     Dates: start: 202111, end: 202112
  2. PALBOCICLIB [Suspect]
     Active Substance: PALBOCICLIB
     Dosage: 100 MG, 1X/DAY
     Route: 048
     Dates: start: 202112

REACTIONS (10)
  - Mastectomy [Unknown]
  - Abdominal discomfort [Unknown]
  - Asthenia [Unknown]
  - Dyslipidaemia [Unknown]
  - Euphoric mood [Unknown]
  - White blood cell count decreased [Unknown]
  - Pain [Unknown]
  - Hyperchlorhydria [Unknown]
  - Hypertension [Unknown]
  - Blood uric acid increased [Unknown]
